FAERS Safety Report 8264231-5 (Version None)
Quarter: 2012Q2

REPORT INFORMATION
  Report Type: 
  Country: None (occurrence: None)
  Receive Date: 20120406
  Receipt Date: 20120327
  Transmission Date: 20120825
  Serious: Yes (Hospitalization)
  Sender: FDA-Public Use
  Company Number: US-JNJFOC-20120314424

PATIENT
  Sex: Female
  Weight: 114.7 kg

DRUGS (2)
  1. REMICADE [Suspect]
     Indication: CROHN'S DISEASE
     Route: 042
     Dates: start: 20070302
  2. REMICADE [Suspect]
     Route: 042
     Dates: start: 20120304

REACTIONS (2)
  - ABDOMINAL PAIN [None]
  - VOMITING [None]
